FAERS Safety Report 10692313 (Version 1)
Quarter: 2015Q1

REPORT INFORMATION
  Report Type: Spontaneous
  Country: US (occurrence: US)
  Receive Date: 20150106
  Receipt Date: 20150106
  Transmission Date: 20150720
  Serious: No
  Sender: FDA-Public Use
  Company Number: US-BIOGENIDEC-2015BI000308

PATIENT
  Age: 58 Year
  Sex: Female

DRUGS (7)
  1. CATALIN [Concomitant]
     Active Substance: PIRENOXINE
  2. OMEGA 3 SUPPLEMENTS [Concomitant]
  3. UNKNOWDRUG [Concomitant]
     Active Substance: UNSPECIFIED INGREDIENT
  4. TECFIDERA [Suspect]
     Active Substance: DIMETHYL FUMARATE
     Indication: MULTIPLE SCLEROSIS
     Route: 048
  5. LLYSINE [Concomitant]
  6. SUPER EFF [Concomitant]
  7. ASPIRIN. [Concomitant]
     Active Substance: ASPIRIN

REACTIONS (1)
  - Rectal haemorrhage [Unknown]
